FAERS Safety Report 7884061-3 (Version None)
Quarter: 2011Q4

REPORT INFORMATION
  Report Type: 
  Country: None (occurrence: None)
  Receive Date: 20111102
  Receipt Date: 20111028
  Transmission Date: 20120403
  Serious: Yes (Other)
  Sender: FDA-Public Use
  Company Number: PHHY2011AU95366

PATIENT
  Sex: Female

DRUGS (2)
  1. CLOZARIL [Suspect]
     Dosage: 2 DF, UNK
  2. CLOZARIL [Suspect]
     Indication: OBSESSIVE-COMPULSIVE DISORDER
     Dosage: 3X100 MG
     Route: 048

REACTIONS (3)
  - EPILEPSY [None]
  - INCOHERENT [None]
  - DISTURBANCE IN ATTENTION [None]
